FAERS Safety Report 22224552 (Version 1)
Quarter: 2023Q2

REPORT INFORMATION
  Report Type: Report from Study
  Country: US (occurrence: None)
  Receive Date: 20230418
  Receipt Date: 20230418
  Transmission Date: 20230722
  Serious: Yes (Other)
  Sender: FDA-Public Use
  Company Number: 2023A086705

PATIENT
  Sex: Male

DRUGS (1)
  1. TAGRISSO [Suspect]
     Active Substance: OSIMERTINIB
     Indication: HER2 mutant non-small cell lung cancer
     Route: 048

REACTIONS (4)
  - Malignant neoplasm progression [Unknown]
  - Brain neoplasm malignant [Unknown]
  - Dementia [Unknown]
  - Drug ineffective [Unknown]
